FAERS Safety Report 6726020-X (Version None)
Quarter: 2010Q2

REPORT INFORMATION
  Report Type: 
  Country: None (occurrence: None)
  Receive Date: 20100514
  Receipt Date: 20100504
  Transmission Date: 20101027
  Serious: Yes (Other)
  Sender: FDA-Public Use
  Company Number: US-PFIZER INC-2010056537

PATIENT
  Sex: Female
  Weight: 75 kg

DRUGS (3)
  1. GEODON [Suspect]
     Indication: CONFUSIONAL STATE
     Dosage: 80 MG, 2X/DAY
     Route: 048
     Dates: start: 20100505
  2. GEODON [Suspect]
     Indication: BIPOLAR I DISORDER
  3. DEPAKOTE [Suspect]
     Indication: SUSPICIOUSNESS
     Dosage: 1000 MG, 1X/DAY
     Route: 048
     Dates: start: 20100101

REACTIONS (4)
  - DELIRIUM [None]
  - DYSARTHRIA [None]
  - FEELING ABNORMAL [None]
  - IMPAIRED DRIVING ABILITY [None]
